FAERS Safety Report 6272277-1 (Version None)
Quarter: 2009Q3

REPORT INFORMATION
  Report Type: 
  Country: None (occurrence: None)
  Receive Date: 20090717
  Receipt Date: 20090604
  Transmission Date: 20100115
  Serious: Yes (Life-Threatening)
  Sender: FDA-Public Use
  Company Number: US-NAPPMUNDI-USA-2009-0039012

PATIENT
  Sex: Female
  Weight: 115.19 kg

DRUGS (2)
  1. OXYCONTIN [Suspect]
     Indication: ANALGESIA
     Dosage: UNK
     Dates: start: 19981119
  2. OXYCONTIN [Suspect]
     Indication: PAIN

REACTIONS (1)
  - CARDIAC ARREST [None]
